FAERS Safety Report 18458246 (Version 9)
Quarter: 2021Q2

REPORT INFORMATION
  Report Type: Spontaneous
  Country: US (occurrence: US)
  Receive Date: 20201103
  Receipt Date: 20210428
  Transmission Date: 20210717
  Serious: No
  Sender: FDA-Public Use
  Company Number: US-PFIZER INC-2020422159

PATIENT
  Age: 61 Year
  Sex: Female

DRUGS (3)
  1. IBRANCE [Suspect]
     Active Substance: PALBOCICLIB
     Dosage: 125 MG
     Dates: start: 20201028
  2. IBRANCE [Suspect]
     Active Substance: PALBOCICLIB
     Dosage: 125 MG
     Dates: start: 20201026
  3. IBRANCE [Suspect]
     Active Substance: PALBOCICLIB
     Dosage: 125 MG
     Dates: start: 20201024

REACTIONS (14)
  - Hot flush [Unknown]
  - Pruritus [Unknown]
  - Oral discomfort [Unknown]
  - Nausea [Unknown]
  - Somnolence [Recovering/Resolving]
  - Rash [Unknown]
  - Trichorrhexis [Unknown]
  - Rhinorrhoea [Unknown]
  - Product dose omission issue [Unknown]
  - Fatigue [Recovering/Resolving]
  - Alopecia [Unknown]
  - Oral herpes [Unknown]
  - Rash pruritic [Unknown]
  - Diarrhoea [Unknown]
